FAERS Safety Report 24119563 (Version 1)
Quarter: 2024Q3

REPORT INFORMATION
  Report Type: Spontaneous
  Country: CN (occurrence: CN)
  Receive Date: 20240722
  Receipt Date: 20240722
  Transmission Date: 20241016
  Serious: Yes (Life-Threatening)
  Sender: MERCK KGAA
  Company Number: CN-Merck Healthcare KGaA-2024039042

PATIENT
  Age: 48 Year
  Sex: Female
  Weight: 58 kg

DRUGS (1)
  1. EUTHYROX [Suspect]
     Active Substance: LEVOTHYROXINE SODIUM
     Indication: Thyroid cancer
     Route: 048
     Dates: start: 20240713, end: 20240714

REACTIONS (1)
  - Ischaemic neuropathy [Recovered/Resolved]

NARRATIVE: CASE EVENT DATE: 20240714
